FAERS Safety Report 8909193 (Version 1)
Quarter: 2012Q4

REPORT INFORMATION
  Report Type: Spontaneous
  Country: DE (occurrence: None)
  Receive Date: 20121111
  Receipt Date: 20121111
  Transmission Date: 20130627
  Serious: Yes (Death, Hospitalization)
  Sender: FDA-Public Use
  Company Number: 1468923

PATIENT
  Age: 58 Year
  Sex: Female
  Weight: 80.3 kg

DRUGS (20)
  1. CALCIUM FOLINATE [Suspect]
     Indication: METASTATIC COLORECTAL CANCER
     Dosage: (not otherwise specified))
     Route: 042
  2. CALCIUM FOLINATE [Suspect]
     Indication: METASTATIC COLORECTAL CANCER
     Dosage: (not otherwise specified))
     Route: 042
     Dates: start: 20110816, end: 20121006
  3. OXALIPLATIN [Suspect]
     Indication: METASTATIC COLORECTAL CANCER
     Dosage: (not otherwise specified))
     Route: 042
     Dates: start: 20101214
  4. FLUOROURACIL [Suspect]
     Indication: METASTATIC COLORECTAL CANCER
     Route: 040
     Dates: start: 20101214, end: 20111006
  5. FLUOROURACIL [Suspect]
     Indication: METASTATIC COLORECTAL CANCER
     Route: 040
     Dates: start: 20110816, end: 20121006
  6. BEVACIZUMAB [Suspect]
     Indication: METASTATIC COLORECTAL CANCER
     Dosage: (not otherwise specified))
     Route: 042
     Dates: start: 20101214
  7. BEVACIZUMAB [Suspect]
     Indication: METASTATIC COLORECTAL CANCER
     Dosage: (not otherwise specified))
     Route: 042
     Dates: start: 20101214
  8. BEVACIZUMAB [Suspect]
     Indication: METASTATIC COLORECTAL CANCER
     Dosage: (not otherwise specified))
     Route: 042
     Dates: start: 20110816
  9. THYRONAJOD [Concomitant]
  10. RAMIPRIL [Concomitant]
  11. DEXAMETHASONE [Concomitant]
  12. ALOXI [Concomitant]
  13. IRINOTECAN [Concomitant]
  14. (PANTOP0RAZOLE) [Concomitant]
  15. (LAXOBERAL) [Concomitant]
  16. HYDROMORPHONE [Concomitant]
  17. NOVAMINSULFON [Concomitant]
  18. (VERGETAN) [Concomitant]
  19. DEXAMETHASON [Concomitant]
  20. GRANISETRON [Concomitant]

REACTIONS (3)
  - Gastrointestinal stoma complication [None]
  - Procedural site reaction [None]
  - General physical health deterioration [None]
